FAERS Safety Report 9997859 (Version 1)
Quarter: 2014Q1

REPORT INFORMATION
  Report Type: Spontaneous
  Country: FR (occurrence: FR)
  Receive Date: 20140311
  Receipt Date: 20140311
  Transmission Date: 20141002
  Serious: Yes (Hospitalization)
  Sender: FDA-Public Use
  Company Number: FR-PFIZER INC-2014064186

PATIENT
  Age: 78 Year
  Sex: Male

DRUGS (9)
  1. TRIFLUCAN [Suspect]
     Indication: ORAL FUNGAL INFECTION
     Dosage: 50 MG, 1X/DAY
     Route: 048
     Dates: start: 20140203, end: 20140214
  2. XARELTO [Interacting]
     Dosage: 10 MG, 1X/DAY
     Route: 048
     Dates: start: 20131203, end: 20140214
  3. PROCORALAN [Concomitant]
  4. URBANYL [Concomitant]
  5. INIPOMP [Concomitant]
  6. CORTANCYL [Concomitant]
  7. ZOLPIDEM [Concomitant]
  8. DOMPERIDONE [Concomitant]
  9. DIFFU-K [Concomitant]

REACTIONS (2)
  - Rectal haemorrhage [Recovered/Resolved]
  - Drug interaction [Recovered/Resolved]
